FAERS Safety Report 7685592-1 (Version None)
Quarter: 2011Q3

REPORT INFORMATION
  Report Type: 
  Country: None (occurrence: None)
  Receive Date: 20110816
  Receipt Date: 20110811
  Transmission Date: 20111222
  Serious: Yes (Other)
  Sender: FDA-Public Use
  Company Number: BR-PFIZER INC-2009308854

PATIENT
  Age: 64 Year
  Sex: Female
  Weight: 71 kg

DRUGS (8)
  1. PRISTIQ [Suspect]
     Indication: MENTAL DISORDER
  2. PRISTIQ [Suspect]
     Indication: DEPRESSION
     Dosage: 50 MG (ONE TABLET), 1X/DAY
     Route: 048
     Dates: start: 20110201, end: 20110501
  3. CLONAZEPAM [Concomitant]
     Dosage: UNK
     Route: 048
  4. OLMESARTAN MEDOXOMIL [Suspect]
     Indication: HYPERTENSION
     Dosage: 40 MG (ONE TABLET), 1X/DAY
     Route: 048
     Dates: start: 20080101
  5. OLMESARTAN MEDOXOMIL [Suspect]
     Indication: BLOOD PRESSURE INCREASED
     Dosage: 20 MG, UNK
     Dates: start: 20090101
  6. NORVASC [Suspect]
     Indication: HYPERTENSION
     Dosage: UNK
     Route: 048
     Dates: start: 20090601
  7. LINSEED [Concomitant]
     Indication: DEPRESSION
     Dosage: 1 MG,  QPM
     Route: 048
     Dates: start: 20100101
  8. ALPRAZOLAM [Concomitant]
     Indication: DEPRESSION
     Dosage: AT NIGHT
     Dates: start: 20110401

REACTIONS (9)
  - ALOPECIA [None]
  - DEPRESSION [None]
  - MALAISE [None]
  - COLD SWEAT [None]
  - BLOOD PRESSURE INCREASED [None]
  - ERYTHEMA [None]
  - PERIPHERAL COLDNESS [None]
  - APPETITE DISORDER [None]
  - WEIGHT DECREASED [None]
